FAERS Safety Report 4706495-8 (Version None)
Quarter: 2005Q3

REPORT INFORMATION
  Report Type: 
  Country: None (occurrence: None)
  Receive Date: 20050705
  Receipt Date: 20050622
  Transmission Date: 20060218
  Serious: Yes (Life-Threatening, Hospitalization)
  Sender: FDA-Public Use
  Company Number: FR-GLAXOSMITHKLINE-B0386357A

PATIENT
  Age: 6 Year
  Sex: Male
  Weight: 21 kg

DRUGS (5)
  1. LAMICTAL [Suspect]
     Indication: EPILEPSY
     Route: 048
     Dates: start: 20050514, end: 20050611
  2. VALPROATE SODIUM [Concomitant]
     Indication: EPILEPSY
     Route: 048
     Dates: start: 20050311
  3. URBANYL [Concomitant]
     Indication: EPILEPSY
     Route: 048
     Dates: start: 20050514
  4. ZARONTIN [Concomitant]
     Indication: EPILEPSY
     Dosage: 250MG TWICE PER DAY
     Route: 048
     Dates: start: 20050520, end: 20050611
  5. VALIUM [Concomitant]
     Route: 065

REACTIONS (10)
  - BLISTER [None]
  - CHEILITIS [None]
  - CONJUNCTIVITIS [None]
  - DRUG INTERACTION [None]
  - EPILEPSY [None]
  - LYMPHADENOPATHY [None]
  - PRURIGO [None]
  - PYREXIA [None]
  - SKIN DISORDER [None]
  - TOXIC EPIDERMAL NECROLYSIS [None]
